FAERS Safety Report 20565062 (Version 1)
Quarter: 2022Q1

REPORT INFORMATION
  Report Type: Spontaneous
  Country: AR (occurrence: None)
  Receive Date: 20220308
  Receipt Date: 20220308
  Transmission Date: 20220423
  Serious: Yes (Hospitalization)
  Sender: FDA-Public Use
  Company Number: 2022A100203

PATIENT
  Sex: Female

DRUGS (5)
  1. FULVESTRANT [Suspect]
     Active Substance: FULVESTRANT
     Indication: Breast cancer metastatic
     Route: 030
  2. LETROZOLE [Concomitant]
     Active Substance: LETROZOLE
  3. PRISONIL [Concomitant]
  4. FILTREN [Concomitant]
  5. TRAMADOL [Concomitant]
     Active Substance: TRAMADOL

REACTIONS (9)
  - Feeling abnormal [Unknown]
  - Pain [Unknown]
  - Chronic gastritis [Unknown]
  - Immune system disorder [Unknown]
  - Renal impairment [Unknown]
  - Polyp [Unknown]
  - Diabetes mellitus [Unknown]
  - Myalgia [Unknown]
  - Cluster headache [Unknown]

NARRATIVE: CASE EVENT DATE: 20210426
